FAERS Safety Report 8451164-4 (Version None)
Quarter: 2012Q2

REPORT INFORMATION
  Report Type: 
  Country: None (occurrence: None)
  Receive Date: 20120620
  Receipt Date: 20120308
  Transmission Date: 20120825
  Serious: No
  Sender: FDA-Public Use
  Company Number: US-VERTEX PHARMACEUTICALS INC.-AE-2011-002853

PATIENT
  Sex: Female
  Weight: 83.99 kg

DRUGS (10)
  1. PEGASYS [Concomitant]
     Indication: HEPATITIS C
     Route: 058
     Dates: start: 20110902
  2. RIBAVIRIN [Concomitant]
     Route: 048
     Dates: start: 20110902
  3. LEVOTHYROXINE SODIUM [Concomitant]
     Indication: HYPOTHYROIDISM
     Route: 048
  4. METFORMIN HCL [Concomitant]
     Indication: DIABETES MELLITUS
     Route: 048
  5. INCIVEK [Suspect]
     Indication: HEPATITIS C
     Route: 048
     Dates: start: 20110902
  6. PEGASYS [Concomitant]
     Dates: start: 20110101
  7. ZOLOFT [Concomitant]
     Indication: DEPRESSION
     Route: 048
  8. VALTREX [Concomitant]
     Indication: GENITAL HERPES
     Route: 048
  9. METOPROLOL SUCCINATE [Concomitant]
     Indication: HYPERTENSION
  10. RIBAVIRIN [Concomitant]
     Indication: HEPATITIS C
     Route: 048
     Dates: start: 20110902

REACTIONS (6)
  - DRUG ADMINISTRATION ERROR [None]
  - RECTAL HAEMORRHAGE [None]
  - PRURITUS [None]
  - RASH [None]
  - DRUG INEFFECTIVE [None]
  - RED BLOOD CELL COUNT DECREASED [None]
